FAERS Safety Report 24373228 (Version 1)
Quarter: 2024Q3

REPORT INFORMATION
  Report Type: Spontaneous
  Country: ES (occurrence: ES)
  Receive Date: 20240927
  Receipt Date: 20240927
  Transmission Date: 20241017
  Serious: Yes (Hospitalization)
  Sender: HETERO
  Company Number: None

PATIENT
  Age: 57 Year
  Sex: Male

DRUGS (3)
  1. OMEPRAZOLE [Suspect]
     Active Substance: OMEPRAZOLE
     Indication: Prophylaxis against transplant rejection
     Dosage: 40 MG, BID(12 HOURS)
     Route: 048
     Dates: start: 20240611, end: 20240718
  2. TACROLIMUS [Suspect]
     Active Substance: TACROLIMUS
     Indication: Prophylaxis against transplant rejection
     Dosage: 10 MG, QD
     Route: 048
     Dates: start: 20240611
  3. MYCOPHENOLATE MOFETIL [Suspect]
     Active Substance: MYCOPHENOLATE MOFETIL
     Indication: Prophylaxis against transplant rejection
     Dosage: 500 MG, BID(12HOURS)
     Route: 048
     Dates: start: 20240611, end: 20240705

REACTIONS (3)
  - Hypophosphataemia [Recovered/Resolved]
  - Hypocalcaemia [Recovered/Resolved]
  - Hypomagnesaemia [Recovered/Resolved]

NARRATIVE: CASE EVENT DATE: 20240615
